FAERS Safety Report 7926049 (Version 5)
Quarter: 2013Q1

REPORT INFORMATION
  Report Type: Spontaneous
  Country: US (occurrence: US)
  Receive Date: 20110502
  Receipt Date: 20130325
  Transmission Date: 20140127
  Serious: Yes (Disabling, Other)
  Sender: FDA-Public Use
  Company Number: US-ASTRAZENECA-2010SE53112

PATIENT
  Age: 59 Year
  Sex: Female
  Weight: 65.8 kg

DRUGS (18)
  1. NEXIUM [Suspect]
     Indication: DYSPEPSIA
     Route: 048
     Dates: end: 2009
  2. PRILOSEC OTC [Suspect]
     Route: 048
  3. CRESTOR [Suspect]
     Indication: BLOOD CHOLESTEROL INCREASED
     Route: 048
     Dates: start: 2007
  4. CRESTOR [Suspect]
     Indication: BLOOD CHOLESTEROL INCREASED
     Route: 048
  5. SYMBICORT PMDI [Suspect]
     Route: 055
     Dates: start: 201008
  6. NEURONTIN [Suspect]
     Indication: TRIGEMINAL NEURALGIA
     Route: 048
  7. LIPITOR [Suspect]
     Indication: BLOOD CHOLESTEROL INCREASED
     Route: 065
  8. LIPITOR [Suspect]
     Indication: BLOOD CHOLESTEROL INCREASED
     Route: 065
  9. ZOCOR [Suspect]
     Route: 065
  10. ZOCOR [Suspect]
     Route: 065
  11. COREG [Concomitant]
     Indication: CARDIAC DISORDER
     Route: 048
  12. PLAVIX [Concomitant]
     Indication: CARDIAC DISORDER
     Route: 048
  13. RANITIDINE [Concomitant]
     Indication: DYSPEPSIA
     Route: 048
  14. MAGNESIUM OXIDE [Concomitant]
     Route: 048
  15. LISINOPRIL [Concomitant]
     Indication: HYPERTENSION
     Route: 048
  16. XANAX [Concomitant]
     Indication: PANIC ATTACK
     Route: 048
  17. TAGAMET [Concomitant]
  18. ZANTAC [Concomitant]

REACTIONS (19)
  - Myocardial infarction [Unknown]
  - Gait disturbance [Unknown]
  - Upper limb fracture [Unknown]
  - Lower limb fracture [Unknown]
  - Dyspnoea [Recovered/Resolved]
  - Dyspepsia [Unknown]
  - Trigeminal neuralgia [Unknown]
  - Body height decreased [Not Recovered/Not Resolved]
  - Chronic obstructive pulmonary disease [Unknown]
  - Blood cholesterol increased [Unknown]
  - Musculoskeletal discomfort [Unknown]
  - Pain in extremity [Unknown]
  - Oesophageal disorder [Unknown]
  - Adverse event [Unknown]
  - Cardiovascular disorder [Unknown]
  - Gastrooesophageal reflux disease [Unknown]
  - Dysphagia [Unknown]
  - Intentional drug misuse [Not Recovered/Not Resolved]
  - Drug dose omission [Unknown]
